FAERS Safety Report 16272616 (Version 2)
Quarter: 2019Q2

REPORT INFORMATION
  Report Type: Spontaneous
  Country: JP (occurrence: JP)
  Receive Date: 20190506
  Receipt Date: 20190530
  Transmission Date: 20190711
  Serious: Yes (Other)
  Sender: FDA-Public Use
  Company Number: JP-SUN PHARMACEUTICAL INDUSTRIES LTD-2019R1-201610

PATIENT
  Age: 72 Year
  Sex: Female

DRUGS (2)
  1. TERNELIN [Suspect]
     Active Substance: TIZANIDINE
     Indication: BACK PAIN
     Dosage: UNK
     Route: 048
  2. DEPAS [ETIZOLAM] [Suspect]
     Active Substance: ETIZOLAM
     Indication: BACK PAIN
     Dosage: UNK
     Route: 048

REACTIONS (1)
  - Glaucoma [Unknown]
